FAERS Safety Report 21438412 (Version 1)
Quarter: 2022Q4

REPORT INFORMATION
  Report Type: Spontaneous
  Country: GB (occurrence: GB)
  Receive Date: 20221011
  Receipt Date: 20221011
  Transmission Date: 20230113
  Serious: Yes (Other)
  Sender: FDA-Public Use
  Company Number: None

PATIENT

DRUGS (3)
  1. TIMOLOL [Suspect]
     Active Substance: TIMOLOL
     Route: 047
     Dates: start: 20220818
  2. BIMATOPROST [Concomitant]
     Active Substance: BIMATOPROST
     Dosage: ONE DROP ONCE DAILY AT NIGHT INTO BOTH EYES
     Route: 047
     Dates: start: 20220504
  3. BRINZOLAMIDE [Concomitant]
     Active Substance: BRINZOLAMIDE
     Dosage: ONE DROP TWICE DAILY INTO BOTH EYES
     Route: 047
     Dates: start: 20220504

REACTIONS (1)
  - Alopecia [Unknown]

NARRATIVE: CASE EVENT DATE: 20220818
